FAERS Safety Report 12607882 (Version 1)
Quarter: 2016Q3

REPORT INFORMATION
  Report Type: Spontaneous
  Country: US (occurrence: US)
  Receive Date: 20160729
  Receipt Date: 20160729
  Transmission Date: 20161109
  Serious: No
  Sender: FDA-Public Use
  Company Number: US-TEVA-674149ACC

PATIENT
  Age: 27 Year
  Sex: Female
  Weight: 77.18 kg

DRUGS (3)
  1. IRON [Concomitant]
     Active Substance: IRON
  2. VITAMIN D [Concomitant]
     Active Substance: CHOLECALCIFEROL
  3. PARAGARD T 380A [Suspect]
     Active Substance: COPPER
     Indication: CONTRACEPTION
     Dates: start: 20150430, end: 20160601

REACTIONS (1)
  - Device expulsion [Recovered/Resolved]

NARRATIVE: CASE EVENT DATE: 20160601
